FAERS Safety Report 4416754-4 (Version None)
Quarter: 2004Q2

REPORT INFORMATION
  Report Type: 
  Country: None (occurrence: None)
  Receive Date: 20040628
  Receipt Date: 20040311
  Transmission Date: 20050107
  Serious: Yes (Hospitalization)
  Sender: FDA-Public Use
  Company Number: USA-2004-0013721

PATIENT
  Age: 35 Year
  Sex: Male
  Weight: 72.6 kg

DRUGS (1)
  1. SPECTRACEF [Suspect]
     Indication: BRONCHITIS
     Dosage: 200 MG, BID,  ORAL
     Route: 048
     Dates: start: 20030308, end: 20030318

REACTIONS (1)
  - CLOSTRIDIUM COLITIS [None]
